FAERS Safety Report 7385423-3 (Version None)
Quarter: 2011Q1

REPORT INFORMATION
  Report Type: 
  Country: None (occurrence: None)
  Receive Date: 20110330
  Receipt Date: 20110217
  Transmission Date: 20110831
  Serious: Yes (Death, Hospitalization, Other)
  Sender: FDA-Public Use
  Company Number: US-BAXTER-2009BH017874

PATIENT
  Age: 83 Year
  Sex: Female
  Weight: 85 kg

DRUGS (43)
  1. LORTAB [Concomitant]
     Indication: PRODUCT USED FOR UNKNOWN INDICATION
     Route: 065
  2. XANAX [Concomitant]
     Route: 065
  3. COREG [Concomitant]
     Indication: PRODUCT USED FOR UNKNOWN INDICATION
     Route: 065
  4. SURFAK [Concomitant]
     Indication: PRODUCT USED FOR UNKNOWN INDICATION
     Route: 065
  5. WARFARIN SODIUM [Concomitant]
     Indication: PRODUCT USED FOR UNKNOWN INDICATION
     Route: 065
  6. MAGNESIUM HYDROXIDE [Concomitant]
     Indication: PRODUCT USED FOR UNKNOWN INDICATION
     Route: 065
  7. PERCOCET [Concomitant]
     Indication: PRODUCT USED FOR UNKNOWN INDICATION
     Route: 065
  8. ENALAPRIL [Concomitant]
     Indication: PRODUCT USED FOR UNKNOWN INDICATION
     Route: 065
  9. PROPRANOLOL [Concomitant]
     Indication: PRODUCT USED FOR UNKNOWN INDICATION
     Route: 065
  10. XANAX [Concomitant]
     Indication: PRODUCT USED FOR UNKNOWN INDICATION
     Route: 065
  11. RANOLAZINE [Concomitant]
     Indication: PRODUCT USED FOR UNKNOWN INDICATION
     Route: 065
  12. HEPARIN SODIUM INJECTION [Suspect]
     Indication: CORONARY ARTERY BYPASS
     Route: 042
     Dates: start: 20071113, end: 20071113
  13. NAPROXEN [Concomitant]
     Indication: PRODUCT USED FOR UNKNOWN INDICATION
     Route: 065
  14. ATROVENT [Concomitant]
     Indication: PRODUCT USED FOR UNKNOWN INDICATION
     Route: 065
  15. CEFAZOLIN [Concomitant]
     Indication: PRODUCT USED FOR UNKNOWN INDICATION
     Route: 065
  16. LASIX [Concomitant]
     Indication: PRODUCT USED FOR UNKNOWN INDICATION
     Route: 065
  17. NORVASK [Concomitant]
     Indication: PRODUCT USED FOR UNKNOWN INDICATION
     Route: 065
  18. PANTOPRAZOLE [Concomitant]
     Indication: PRODUCT USED FOR UNKNOWN INDICATION
     Route: 065
  19. ACETAMINOPHEN [Concomitant]
     Indication: PRODUCT USED FOR UNKNOWN INDICATION
     Route: 065
  20. RESTORIL [Concomitant]
     Indication: PRODUCT USED FOR UNKNOWN INDICATION
     Route: 065
  21. PLAVIX [Concomitant]
     Indication: PRODUCT USED FOR UNKNOWN INDICATION
     Route: 065
  22. EPINEPHRINE [Concomitant]
     Indication: PRODUCT USED FOR UNKNOWN INDICATION
     Route: 065
  23. HEPARIN SODIUM INJECTION [Suspect]
     Route: 065
     Dates: start: 20071113
  24. HEPARIN SODIUM INJECTION [Suspect]
     Route: 065
     Dates: start: 20071113, end: 20071113
  25. ASPIRIN [Concomitant]
     Indication: PRODUCT USED FOR UNKNOWN INDICATION
     Route: 065
  26. POTASSIUM CHLORIDE [Concomitant]
     Indication: PRODUCT USED FOR UNKNOWN INDICATION
     Route: 065
  27. ALBUTEROL SULFATE [Concomitant]
     Indication: PRODUCT USED FOR UNKNOWN INDICATION
     Route: 065
  28. VASOTEC [Concomitant]
     Indication: PRODUCT USED FOR UNKNOWN INDICATION
     Route: 065
  29. REGLAN [Concomitant]
     Indication: PRODUCT USED FOR UNKNOWN INDICATION
     Route: 065
  30. VASOTEC [Concomitant]
     Route: 065
  31. ROSUVASTATIN [Concomitant]
     Indication: PRODUCT USED FOR UNKNOWN INDICATION
     Route: 065
  32. ZOFRAN [Concomitant]
     Indication: PRODUCT USED FOR UNKNOWN INDICATION
     Route: 065
  33. ARGATROBAN [Concomitant]
     Indication: PRODUCT USED FOR UNKNOWN INDICATION
     Route: 065
  34. NITROGLYCERIN [Concomitant]
     Indication: PRODUCT USED FOR UNKNOWN INDICATION
     Route: 065
  35. PREVACID [Concomitant]
     Indication: PRODUCT USED FOR UNKNOWN INDICATION
     Route: 065
  36. DOPAMINE [Concomitant]
     Indication: PRODUCT USED FOR UNKNOWN INDICATION
     Route: 065
  37. MORPHINE SULFATE [Concomitant]
     Indication: PRODUCT USED FOR UNKNOWN INDICATION
     Route: 065
  38. HEPARIN SODIUM INJECTION [Suspect]
     Route: 042
     Dates: start: 20071113, end: 20071113
  39. HEPARIN SODIUM INJECTION [Suspect]
     Route: 065
     Dates: start: 20071113, end: 20071113
  40. HEPARIN SODIUM INJECTION [Suspect]
     Route: 065
     Dates: start: 20071113, end: 20071113
  41. AMIODARONE HCL [Concomitant]
     Indication: PRODUCT USED FOR UNKNOWN INDICATION
     Route: 065
  42. PROPRANOLOL [Concomitant]
     Indication: PRODUCT USED FOR UNKNOWN INDICATION
     Route: 065
  43. K-DUR [Concomitant]
     Indication: PRODUCT USED FOR UNKNOWN INDICATION
     Route: 065

REACTIONS (37)
  - CORONARY ARTERY DISEASE [None]
  - CHEST PAIN [None]
  - CONTUSION [None]
  - HYPOTENSION [None]
  - FLUID OVERLOAD [None]
  - URINARY RETENTION [None]
  - RENAL FAILURE [None]
  - PLEURAL EFFUSION [None]
  - ATRIAL FLUTTER [None]
  - DEPRESSED LEVEL OF CONSCIOUSNESS [None]
  - ATROPHY [None]
  - HAEMATEMESIS [None]
  - VOMITING [None]
  - CARDIAC FAILURE CONGESTIVE [None]
  - DEMENTIA [None]
  - ESCHERICHIA INFECTION [None]
  - CONFUSIONAL STATE [None]
  - ULCER [None]
  - ANAEMIA [None]
  - JUGULAR VEIN THROMBOSIS [None]
  - DYSPNOEA [None]
  - VENOUS THROMBOSIS [None]
  - NECK PAIN [None]
  - NAUSEA [None]
  - HYPOKALAEMIA [None]
  - GASTROINTESTINAL HAEMORRHAGE [None]
  - HEPARIN-INDUCED THROMBOCYTOPENIA [None]
  - ASTHENIA [None]
  - STAPHYLOCOCCAL INFECTION [None]
  - CEREBROVASCULAR DISORDER [None]
  - ATRIAL FIBRILLATION [None]
  - FAILURE TO THRIVE [None]
  - RESPIRATORY FAILURE [None]
  - CEREBROVASCULAR ACCIDENT [None]
  - HYPOXIA [None]
  - CHILLS [None]
  - HYPERSENSITIVITY [None]
